FAERS Safety Report 10045280 (Version 1)
Quarter: 2014Q1

REPORT INFORMATION
  Report Type: Spontaneous
  Country: US (occurrence: US)
  Receive Date: 20140328
  Receipt Date: 20140328
  Transmission Date: 20141002
  Serious: Yes (Other)
  Sender: FDA-Public Use
  Company Number: US-JHP PHARMACEUTICALS, LLC-JHP201300728

PATIENT
  Age: 15 Year
  Sex: Male

DRUGS (4)
  1. KETALAR [Suspect]
     Indication: INDUCTION OF ANAESTHESIA
     Dosage: 1.5 MG/KG, SINGLE
     Route: 042
     Dates: start: 20131111, end: 20131111
  2. ALBUTEROL [Concomitant]
     Dosage: EVERY 6 HOURS
     Route: 055
  3. HYDROCODONE BITARTRATE AND ACETAMINOPHEN [Concomitant]
     Indication: PAIN
     Dosage: 5-325 EVERY 4 HOURS, PRN
     Route: 048
  4. IBUPROFEN [Concomitant]
     Dosage: 600 MG, UNK
     Route: 048
     Dates: start: 20131111, end: 20131111

REACTIONS (4)
  - Tremor [Recovered/Resolved]
  - Urticaria [Recovered/Resolved]
  - Muscle rigidity [Recovered/Resolved]
  - Off label use [Recovered/Resolved]
